FAERS Safety Report 5159188-X (Version None)
Quarter: 2006Q4

REPORT INFORMATION
  Report Type: 
  Country: None (occurrence: None)
  Receive Date: 20061120
  Receipt Date: 20061109
  Transmission Date: 20070319
  Serious: Yes (Hospitalization, Congenital Anomaly)
  Sender: FDA-Public Use
  Company Number: LTI2006A00273

PATIENT
  Age: 1 Day
  Sex: Male

DRUGS (3)
  1. LANSOPRAZOLE [Suspect]
     Indication: RHEUMATOID ARTHRITIS
     Dates: start: 20060116
  2. SULFASALAZINE [Suspect]
     Indication: RHEUMATOID ARTHRITIS
     Dates: start: 20060116
  3. VOLTAREN [Suspect]
     Dates: end: 20060115

REACTIONS (14)
  - BLOOD GLUCOSE DECREASED [None]
  - CONGENITAL GENITOURINARY ABNORMALITY [None]
  - CONGENITAL RENAL CYST [None]
  - CONGENITAL URETERIC ANOMALY [None]
  - DRUG EXPOSURE DURING PREGNANCY [None]
  - FEEDING DISORDER NEONATAL [None]
  - FUNGAL INFECTION [None]
  - HAEMOGLOBIN DECREASED [None]
  - JAUNDICE NEONATAL [None]
  - PYELOCALIECTASIS [None]
  - RENAL DYSPLASIA [None]
  - URETHRAL STENOSIS [None]
  - WEIGHT DECREASE NEONATAL [None]
  - WHITE BLOOD CELL COUNT DECREASED [None]
